FAERS Safety Report 16462568 (Version 1)
Quarter: 2019Q2

REPORT INFORMATION
  Report Type: Spontaneous
  Country: AU (occurrence: AU)
  Receive Date: 20190621
  Receipt Date: 20190621
  Transmission Date: 20190711
  Serious: Yes (Hospitalization)
  Sender: FDA-Public Use
  Company Number: AU-APOTEX-2019AP016961

PATIENT
  Age: 10 Day
  Sex: Male
  Weight: 3.5 kg

DRUGS (1)
  1. PARACETAMOL [Suspect]
     Active Substance: ACETAMINOPHEN
     Indication: PRODUCT USED FOR UNKNOWN INDICATION
     Dosage: 200 MG, Q.6H (224 MG/KG TOTAL)
     Route: 065

REACTIONS (6)
  - Accidental overdose [Unknown]
  - Drug half-life increased [Unknown]
  - Alanine aminotransferase increased [Unknown]
  - Analgesic drug level increased [Unknown]
  - Hyperbilirubinaemia [Unknown]
  - Gamma-glutamyltransferase increased [Unknown]
